FAERS Safety Report 12719063 (Version 1)
Quarter: 2016Q3

REPORT INFORMATION
  Report Type: Spontaneous
  Country: DE (occurrence: DE)
  Receive Date: 20160907
  Receipt Date: 20160907
  Transmission Date: 20161109
  Serious: Yes (Other)
  Sender: FDA-Public Use
  Company Number: DE-AUROBINDO-AUR-APL-2016-11190

PATIENT
  Sex: Male
  Weight: 103 kg

DRUGS (5)
  1. ATORVASTATIN [Suspect]
     Active Substance: ATORVASTATIN
     Indication: HYPERCHOLESTEROLAEMIA
     Dosage: 1 DF, ONCE A DAY
     Route: 048
     Dates: start: 20160218, end: 20160223
  2. PRAVASTATIN. [Suspect]
     Active Substance: PRAVASTATIN
     Indication: HYPERCHOLESTEROLAEMIA
     Dosage: 1 DF, ONCE A DAY
     Dates: start: 20160223, end: 20160406
  3. FENOFIBRAT [Suspect]
     Active Substance: FENOFIBRATE
     Indication: HYPERCHOLESTEROLAEMIA
     Dosage: 1 DF, ONCE A DAY
     Route: 048
     Dates: start: 20160614, end: 20160810
  4. OMEGA-3                            /01866101/ [Concomitant]
     Active Substance: OMEGA-3 FATTY ACIDS
     Indication: PRODUCT USED FOR UNKNOWN INDICATION
     Dosage: 1000 MG, 3 TIMES EVERY 2 DAYS
     Dates: start: 20150921, end: 20160614
  5. SIMVASTATIN. [Suspect]
     Active Substance: SIMVASTATIN
     Indication: HYPERCHOLESTEROLAEMIA
     Route: 048

REACTIONS (5)
  - Tendon injury [Recovered/Resolved]
  - Gout [Recovered/Resolved]
  - Skin exfoliation [Recovered/Resolved]
  - Arthralgia [Recovered/Resolved]
  - Petechiae [Recovered/Resolved]
